FAERS Safety Report 8204903-1 (Version None)
Quarter: 2012Q1

REPORT INFORMATION
  Report Type: 
  Country: None (occurrence: None)
  Receive Date: 20120313
  Receipt Date: 20120306
  Transmission Date: 20120608
  Serious: No
  Sender: FDA-Public Use
  Company Number: US-BAYER-2012-023862

PATIENT
  Age: 76 Year
  Sex: Female
  Weight: 77 kg

DRUGS (4)
  1. ALEVE (CAPLET) [Suspect]
     Indication: BACK PAIN
     Dosage: 1 U, PRN
     Route: 048
     Dates: start: 20120201
  2. SINGULAIR [Concomitant]
  3. ASTEPRO [Concomitant]
  4. DEXILANT [Concomitant]

REACTIONS (1)
  - INITIAL INSOMNIA [None]
